FAERS Safety Report 21112183 (Version 4)
Quarter: 2022Q3

REPORT INFORMATION
  Report Type: Report from Study
  Country: AU (occurrence: AU)
  Receive Date: 20220721
  Receipt Date: 20220825
  Transmission Date: 20221027
  Serious: Yes (Other)
  Sender: FDA-Public Use
  Company Number: AU-BIOGEN-2021BI01065207

PATIENT
  Age: 55 Year
  Sex: Female

DRUGS (12)
  1. TECFIDERA [Suspect]
     Active Substance: DIMETHYL FUMARATE
     Indication: Multiple sclerosis
     Dosage: NOCTE
     Route: 050
     Dates: start: 20211101, end: 20211107
  2. TECFIDERA [Suspect]
     Active Substance: DIMETHYL FUMARATE
     Route: 050
     Dates: start: 20211108, end: 20211114
  3. TECFIDERA [Suspect]
     Active Substance: DIMETHYL FUMARATE
     Dosage: MANE
     Route: 050
     Dates: start: 20211115
  4. TECFIDERA [Suspect]
     Active Substance: DIMETHYL FUMARATE
     Dosage: NOCTE
     Route: 050
  5. TECFIDERA [Suspect]
     Active Substance: DIMETHYL FUMARATE
     Dosage: PATIENT TAKEN TECFIDERA 240 MG TWICE DAILY ON MONDAY,?WEDNESDAY, FRIDAY AND SUNDAY (06-DEC-2021 T...
     Route: 050
     Dates: start: 20211206
  6. TECFIDERA [Suspect]
     Active Substance: DIMETHYL FUMARATE
     Dosage: PATIENT HAS TAKEN 240?MG MANE ON TUESDAY, THURSDAY AND SATURDAY (07-DEC-2021 TO THE 11-DEC-2021)
     Route: 050
     Dates: start: 20211207
  7. TECFIDERA [Suspect]
     Active Substance: DIMETHYL FUMARATE
     Dosage: 120 MG NOCTE ON TUESDAY, THURSDAY AND SATURDAY (07-DEC-2021 TO THE 11-DEC-2021)
     Route: 050
     Dates: start: 20211207
  8. TECFIDERA [Suspect]
     Active Substance: DIMETHYL FUMARATE
     Dosage: PATIENT TAKEN TECFIDERA 240 MG TWICE DAILY ON MONDAY,?WEDNESDAY, FRIDAY AND SUNDAY (06-DEC-2021 T...
     Route: 050
     Dates: start: 20211208
  9. TECFIDERA [Suspect]
     Active Substance: DIMETHYL FUMARATE
     Dosage: MAINTENANCE DOSE
     Route: 050
     Dates: start: 20211101
  10. TECFIDERA [Suspect]
     Active Substance: DIMETHYL FUMARATE
     Route: 050
  11. VITAMIN D [Concomitant]
     Active Substance: VITAMIN D NOS
     Indication: Product used for unknown indication
     Route: 050
  12. FISH OIL [Concomitant]
     Active Substance: FISH OIL
     Indication: Product used for unknown indication
     Route: 050

REACTIONS (7)
  - Deep vein thrombosis [Unknown]
  - Vomiting [Recovered/Resolved]
  - Abdominal distension [Not Recovered/Not Resolved]
  - COVID-19 [Recovered/Resolved]
  - Hypophagia [Unknown]
  - Fluid intake reduced [Unknown]
  - Hot flush [Recovered/Resolved]

NARRATIVE: CASE EVENT DATE: 20211107
